FAERS Safety Report 5962730-X (Version None)
Quarter: 2008Q4

REPORT INFORMATION
  Report Type: 
  Country: None (occurrence: None)
  Receive Date: 20081124
  Receipt Date: 20081112
  Transmission Date: 20090506
  Serious: Yes (Disabling)
  Sender: FDA-Public Use
  Company Number: GB-JNJFOC-20080500209

PATIENT
  Age: 46 Year

DRUGS (5)
  1. TOPIRAMATE [Suspect]
     Indication: EPILEPSY
     Route: 065
  2. CARBAMAZEPINE [Suspect]
     Indication: EPILEPSY
     Route: 048
  3. GABAPENTIN [Suspect]
     Indication: EPILEPSY
     Route: 065
  4. LAMOTRIGINE [Suspect]
     Indication: EPILEPSY
     Route: 048
  5. ACETAMINOPHEN [Concomitant]
     Route: 065

REACTIONS (4)
  - MACULAR DEGENERATION [None]
  - MACULOPATHY [None]
  - RETINAL DEPOSITS [None]
  - VISUAL ACUITY REDUCED [None]
